FAERS Safety Report 7054382-5 (Version None)
Quarter: 2010Q4

REPORT INFORMATION
  Report Type: 
  Country: None (occurrence: None)
  Receive Date: 20101015
  Receipt Date: 20101011
  Transmission Date: 20110411
  Serious: Yes (Death, Hospitalization)
  Sender: FDA-Public Use
  Company Number: 2010US001437

PATIENT
  Age: 44 Year
  Sex: Female

DRUGS (8)
  1. PROGRAF [Suspect]
     Indication: RENAL TRANSPLANT
     Dosage: 5 MG
     Dates: start: 20060312
  2. PREDNISOLON (PREDNIONE) [Concomitant]
  3. ENALAPRIL MALEATE [Concomitant]
  4. METOPROLOL SUCCINATE [Concomitant]
  5. FOLIC ACID [Concomitant]
  6. FERROUS SULFATE TAB [Concomitant]
  7. MYCOPHENOLATE MOFETIL [Concomitant]
  8. LOPERAMIDE [Concomitant]

REACTIONS (3)
  - BACTERIAL INFECTION [None]
  - DIARRHOEA [None]
  - PLATELET COUNT DECREASED [None]
